FAERS Safety Report 12293503 (Version 3)
Quarter: 2018Q4

REPORT INFORMATION
  Report Type: Spontaneous
  Country: US (occurrence: US)
  Receive Date: 20160421
  Receipt Date: 20181010
  Transmission Date: 20190204
  Serious: Yes (Hospitalization)
  Sender: FDA-Public Use
  Company Number: US-DSJP-DSU-2016-102748

PATIENT

DRUGS (9)
  1. BENICAR [Suspect]
     Active Substance: OLMESARTAN MEDOXOMIL
     Indication: HYPERTENSION
     Dosage: 20 MG, QD
     Route: 048
     Dates: end: 201309
  2. BENICAR [Suspect]
     Active Substance: OLMESARTAN MEDOXOMIL
     Dosage: 5 MG, QD
     Route: 048
     Dates: start: 20130823
  3. ASPIRIN                            /00002701/ [Concomitant]
     Active Substance: ASPIRIN
     Indication: PRODUCT USED FOR UNKNOWN INDICATION
     Dosage: 325 MG, QD
     Route: 048
  4. PULMICORT TURBUHALER [Concomitant]
     Active Substance: BUDESONIDE
     Indication: ASTHMA
     Dosage: 2PUFFS, BID
     Route: 045
  5. LANTUS [Concomitant]
     Active Substance: INSULIN GLARGINE
     Indication: PRODUCT USED FOR UNKNOWN INDICATION
     Dosage: 2 UNITS, QD
     Route: 058
  6. ALBUTEROL                          /00139501/ [Concomitant]
     Active Substance: ALBUTEROL
     Indication: ASTHMA
     Dosage: 2PUFFS 6HOURS, AS NEEDED
     Route: 045
  7. FISH OIL [Concomitant]
     Active Substance: FISH OIL
     Indication: PRODUCT USED FOR UNKNOWN INDICATION
     Dosage: UNK
     Dates: start: 20120305
  8. LEVOTHYROXINE. [Concomitant]
     Active Substance: LEVOTHYROXINE
     Indication: HYPOTHYROIDISM
     Dosage: 100 ?G, QD
     Route: 048
  9. FLUTICASONE. [Concomitant]
     Active Substance: FLUTICASONE
     Indication: ASTHMA
     Dosage: 1 SPRAY, QD
     Route: 045

REACTIONS (24)
  - Pleural effusion [Unknown]
  - Hiatus hernia [Unknown]
  - Sprue-like enteropathy [Recovering/Resolving]
  - Ileus [Recovering/Resolving]
  - Dysphagia [Unknown]
  - Chills [Unknown]
  - Anxiety [Recovering/Resolving]
  - Gastric polyps [Unknown]
  - Oedema peripheral [Unknown]
  - Gastrointestinal haemorrhage [Unknown]
  - Gait disturbance [Unknown]
  - Hyperammonaemia [Recovering/Resolving]
  - Hypoaesthesia [Unknown]
  - Coeliac disease [Recovering/Resolving]
  - Memory impairment [Unknown]
  - Orthostatic hypotension [Recovering/Resolving]
  - Atelectasis [Unknown]
  - Abdominal lymphadenopathy [Unknown]
  - Leukocytosis [Unknown]
  - Depression [Recovering/Resolving]
  - Tachycardia [Unknown]
  - Acute kidney injury [Recovering/Resolving]
  - Night sweats [Unknown]
  - Presyncope [Recovering/Resolving]

NARRATIVE: CASE EVENT DATE: 20120407
